FAERS Safety Report 15566827 (Version 1)
Quarter: 2018Q4

REPORT INFORMATION
  Report Type: Spontaneous
  Country: IN (occurrence: IN)
  Receive Date: 20181030
  Receipt Date: 20181030
  Transmission Date: 20190205
  Serious: Yes (Other)
  Sender: FDA-Public Use
  Company Number: IN-009507513-1810IND012367

PATIENT
  Age: 58 Year
  Sex: Male

DRUGS (3)
  1. ACETAMINOPHEN. [Concomitant]
     Active Substance: ACETAMINOPHEN
  2. VITAMINS (UNSPECIFIED) [Concomitant]
     Active Substance: VITAMINS
  3. ERTAPENEM SODIUM [Suspect]
     Active Substance: ERTAPENEM SODIUM
     Dosage: 1 GRAM, BD FOR 4 DAYS
     Route: 042

REACTIONS (1)
  - Tubulointerstitial nephritis [Unknown]
